FAERS Safety Report 17744457 (Version 2)
Quarter: 2020Q2

REPORT INFORMATION
  Report Type: Spontaneous
  Country: US (occurrence: US)
  Receive Date: 20200505
  Receipt Date: 20200609
  Transmission Date: 20200714
  Serious: No
  Sender: FDA-Public Use
  Company Number: US-BAUSCH-BL-2020-012122

PATIENT
  Sex: Female

DRUGS (1)
  1. BRIMONIDINE TARTRATE OPHTHALMIC SOLUTION 0.2% [Suspect]
     Active Substance: BRIMONIDINE TARTRATE
     Indication: GLAUCOMA
     Route: 047
     Dates: end: 2020

REACTIONS (4)
  - Product packaging difficult to open [Unknown]
  - Therapy interrupted [Unknown]
  - Malaise [Unknown]
  - Limb injury [Unknown]

NARRATIVE: CASE EVENT DATE: 2020
